FAERS Safety Report 13120722 (Version 3)
Quarter: 2017Q1

REPORT INFORMATION
  Report Type: Report from Study
  Country: FR (occurrence: FR)
  Receive Date: 20170117
  Receipt Date: 20170210
  Transmission Date: 20170428
  Serious: Yes (Death)
  Sender: FDA-Public Use
  Company Number: FR-ACTELION-A-CH2016-143655

PATIENT
  Age: 19 Year
  Sex: Female
  Weight: 50 kg

DRUGS (12)
  1. UPTRAVI [Suspect]
     Active Substance: SELEXIPAG
     Dosage: 600 ?G, UNK
     Route: 048
     Dates: start: 20161010
  2. UPTRAVI [Suspect]
     Active Substance: SELEXIPAG
     Dosage: 1000 ?G, UNK
     Route: 048
     Dates: start: 20161024
  3. ADCIRCA [Concomitant]
     Active Substance: TADALAFIL
     Dosage: 40 MG, UNK
     Dates: start: 20151113, end: 20170104
  4. UPTRAVI [Suspect]
     Active Substance: SELEXIPAG
     Dosage: 200 UNK, UNK
     Route: 048
     Dates: start: 20160926
  5. UPTRAVI [Suspect]
     Active Substance: SELEXIPAG
     Dosage: 800 ?G, UNK
     Route: 048
     Dates: start: 20161017
  6. UPTRAVI [Suspect]
     Active Substance: SELEXIPAG
     Dosage: 1400 ?G, UNK
     Route: 048
     Dates: start: 20161107
  7. UPTRAVI [Suspect]
     Active Substance: SELEXIPAG
     Dosage: 1200 ?G, UNK
     Route: 048
     Dates: start: 20161031
  8. UPTRAVI [Suspect]
     Active Substance: SELEXIPAG
     Dosage: 1600 ?G, UNK
     Route: 048
     Dates: start: 20161114, end: 20170104
  9. TRACLEER [Concomitant]
     Active Substance: BOSENTAN
     Indication: PULMONARY ARTERIAL HYPERTENSION
     Dosage: 125 MG, BID
     Route: 048
     Dates: start: 20151113, end: 20170104
  10. ADCIRCA [Concomitant]
     Active Substance: TADALAFIL
     Dosage: 20 MG, QD
     Dates: start: 20151019, end: 20151112
  11. UPTRAVI [Suspect]
     Active Substance: SELEXIPAG
     Indication: PULMONARY ARTERIAL HYPERTENSION
     Dosage: 400 ?G, BID
     Route: 048
     Dates: start: 20161003
  12. TRACLEER [Concomitant]
     Active Substance: BOSENTAN
     Dosage: 62.5 MG, BID
     Route: 048
     Dates: start: 20151019, end: 20151112

REACTIONS (9)
  - Abdominal pain [Recovered/Resolved]
  - Fatigue [Not Recovered/Not Resolved]
  - Headache [Not Recovered/Not Resolved]
  - Resuscitation [Fatal]
  - Cardiac arrest [Fatal]
  - Sudden cardiac death [Fatal]
  - Diarrhoea [Recovered/Resolved]
  - Malaise [Fatal]
  - Groin pain [Not Recovered/Not Resolved]

NARRATIVE: CASE EVENT DATE: 20161004
